FAERS Safety Report 18584594 (Version 3)
Quarter: 2021Q1

REPORT INFORMATION
  Report Type: Report from Study
  Country: None (occurrence: US)
  Receive Date: 20201207
  Receipt Date: 20210305
  Transmission Date: 20210419
  Serious: Yes (Other)
  Sender: FDA-Public Use
  Company Number: US-ABBVIE-20K-163-3674431-00

PATIENT
  Age: 50 Year
  Sex: Female

DRUGS (3)
  1. HUMIRA [Suspect]
     Active Substance: ADALIMUMAB
     Indication: RHEUMATOID ARTHRITIS
     Route: 058
     Dates: start: 20210105, end: 2021
  2. HUMIRA [Suspect]
     Active Substance: ADALIMUMAB
     Route: 058
     Dates: start: 20210204
  3. HUMIRA [Suspect]
     Active Substance: ADALIMUMAB
     Indication: RHEUMATOID ARTHRITIS
     Route: 058
     Dates: start: 2013, end: 2015

REACTIONS (39)
  - Foot fracture [Recovering/Resolving]
  - Bone operation [Recovering/Resolving]
  - Rheumatoid arthritis [Unknown]
  - Uveitis [Unknown]
  - Iritis [Not Recovered/Not Resolved]
  - Gait disturbance [Unknown]
  - Condition aggravated [Unknown]
  - Pyrexia [Recovered/Resolved]
  - Arthralgia [Not Recovered/Not Resolved]
  - Rheumatoid arthritis [Unknown]
  - Pain [Unknown]
  - Colitis ulcerative [Unknown]
  - Fatigue [Unknown]
  - Musculoskeletal stiffness [Not Recovered/Not Resolved]
  - Contusion [Recovered/Resolved]
  - Headache [Recovered/Resolved]
  - Pain [Unknown]
  - Unevaluable event [Unknown]
  - Nasopharyngitis [Unknown]
  - Stress fracture [Recovering/Resolving]
  - Joint swelling [Not Recovered/Not Resolved]
  - Loss of personal independence in daily activities [Unknown]
  - Procedural complication [Not Recovered/Not Resolved]
  - Joint range of motion decreased [Not Recovered/Not Resolved]
  - Injection site reaction [Recovered/Resolved]
  - Headache [Unknown]
  - COVID-19 [Unknown]
  - Cardiac pacemaker removal [Not Recovered/Not Resolved]
  - Humerus fracture [Recovering/Resolving]
  - Scleritis [Not Recovered/Not Resolved]
  - Fracture [Recovering/Resolving]
  - Fall [Recovering/Resolving]
  - Crohn^s disease [Unknown]
  - Inflammatory bowel disease [Not Recovered/Not Resolved]
  - Upper limb fracture [Recovering/Resolving]
  - Cardiac pacemaker insertion [Unknown]
  - Rotator cuff repair [Recovering/Resolving]
  - Injection site reaction [Unknown]
  - Joint stiffness [Not Recovered/Not Resolved]

NARRATIVE: CASE EVENT DATE: 201610
